FAERS Safety Report 17495478 (Version 1)
Quarter: 2020Q1

REPORT INFORMATION
  Report Type: Spontaneous
  Country: US (occurrence: US)
  Receive Date: 20200303
  Receipt Date: 20200303
  Transmission Date: 20200409
  Serious: Yes (Other)
  Sender: FDA-Public Use
  Company Number: None

PATIENT
  Age: 51 Year
  Sex: Male

DRUGS (2)
  1. BUPRENORPHINE NALOXONE 8-NG TABLETS [Concomitant]
     Active Substance: BUPRENORPHINE\NALOXONE
     Dates: start: 20200213, end: 20200303
  2. BUPRENORPHINE/NALAXONE TABLETS [Suspect]
     Active Substance: BUPRENORPHINE HYDROCHLORIDE\NALOXONE HYDROCHLORIDE
     Indication: DRUG DEPENDENCE
     Route: 048
     Dates: start: 20200213, end: 20200303

REACTIONS (3)
  - Aptyalism [None]
  - Product solubility abnormal [None]
  - Drug dependence [None]

NARRATIVE: CASE EVENT DATE: 20200302
